FAERS Safety Report 7989664-3 (Version None)
Quarter: 2011Q4

REPORT INFORMATION
  Report Type: 
  Country: None (occurrence: None)
  Receive Date: 20111219
  Receipt Date: 20111219
  Transmission Date: 20120403
  Serious: Yes (Hospitalization, Other)
  Sender: FDA-Public Use
  Company Number: TW-BAYER-2011-121322

PATIENT
  Age: 85 Year
  Sex: Male

DRUGS (1)
  1. ASPIRIN [Suspect]
     Dosage: UNK
     Dates: start: 20100901, end: 20100901

REACTIONS (6)
  - HAEMORRHOIDS [None]
  - MELAENA [None]
  - GASTRITIS EROSIVE [None]
  - COLONIC POLYP [None]
  - DIVERTICULUM [None]
  - GASTROINTESTINAL HAEMORRHAGE [None]
